FAERS Safety Report 9409007 (Version 1)
Quarter: 2013Q3

REPORT INFORMATION
  Report Type: Spontaneous
  Country: FR (occurrence: FR)
  Receive Date: 20130719
  Receipt Date: 20130719
  Transmission Date: 20140515
  Serious: Yes (Other)
  Sender: FDA-Public Use
  Company Number: FR-009507513-1307FRA005663

PATIENT
  Age: 58 Year
  Sex: Male
  Weight: 80 kg

DRUGS (3)
  1. VICTRELIS [Suspect]
     Indication: HEPATITIS C
     Dosage: UNK
     Route: 048
     Dates: start: 20120430, end: 20130304
  2. VIRAFERONPEG [Suspect]
     Indication: HEPATITIS C
     Dosage: UNK
     Route: 058
     Dates: start: 20120403, end: 20130226
  3. REBETOL [Suspect]
     Indication: HEPATITIS C
     Dosage: UNK
     Route: 048
     Dates: start: 20120403, end: 20130304

REACTIONS (1)
  - Hepatocellular carcinoma [Unknown]
